FAERS Safety Report 6340794-1 (Version None)
Quarter: 2009Q3

REPORT INFORMATION
  Report Type: 
  Country: None (occurrence: None)
  Receive Date: 20090904
  Receipt Date: 20090826
  Transmission Date: 20100115
  Serious: Yes (Hospitalization)
  Sender: FDA-Public Use
  Company Number: PHHY2009CA24228

PATIENT
  Sex: Female

DRUGS (1)
  1. CLOZARIL [Suspect]
     Indication: SCHIZOPHRENIA
     Dosage: 400 MG, UNK
     Route: 048
     Dates: start: 19980910

REACTIONS (8)
  - ABDOMINAL PAIN [None]
  - ANAEMIA [None]
  - ASTHMA [None]
  - EXPLORATIVE LAPAROTOMY [None]
  - HYPOALBUMINAEMIA [None]
  - HYPOTHYROIDISM [None]
  - PNEUMONIA ASPIRATION [None]
  - SEPTIC SHOCK [None]
